FAERS Safety Report 24270552 (Version 1)
Quarter: 2024Q3

REPORT INFORMATION
  Report Type: Spontaneous
  Country: GB (occurrence: GB)
  Receive Date: 20240831
  Receipt Date: 20240831
  Transmission Date: 20241017
  Serious: Yes (Life-Threatening, Disabling, Congenital Anomaly, Other)
  Sender: ACCORD
  Company Number: None

PATIENT
  Sex: Male

DRUGS (2)
  1. ONDANSETRON [Suspect]
     Active Substance: ONDANSETRON
     Indication: Hyperemesis gravidarum
  2. FOLIC ACID [Concomitant]
     Active Substance: FOLIC ACID
     Indication: Vitamin supplementation

REACTIONS (14)
  - Foetal exposure during pregnancy [Unknown]
  - Congenital anomaly [Not Recovered/Not Resolved]
  - Corpus callosotomy [Unknown]
  - Status epilepticus [Unknown]
  - Hydronephrosis [Unknown]
  - Gene mutation [Unknown]
  - Intellectual disability [Unknown]
  - Speech disorder [Unknown]
  - Developmental delay [Unknown]
  - Congenital megaureter [Unknown]
  - Epilepsy [Unknown]
  - Autism spectrum disorder [Unknown]
  - Attention deficit hyperactivity disorder [Unknown]
  - Enuresis [Unknown]
